FAERS Safety Report 8891107 (Version 1)
Quarter: 2012Q4

REPORT INFORMATION
  Report Type: Report from Study
  Country: CA (occurrence: CA)
  Receive Date: 20121107
  Receipt Date: 20121107
  Transmission Date: 20130627
  Serious: Yes (Hospitalization)
  Sender: FDA-Public Use
  Company Number: CA-JNJFOC-20121015972

PATIENT
  Sex: Female
  Weight: 64.86 kg

DRUGS (1)
  1. REMICADE [Suspect]
     Indication: CROHN^S DISEASE
     Route: 042
     Dates: end: 201201

REACTIONS (4)
  - Chest discomfort [Unknown]
  - Liver disorder [Not Recovered/Not Resolved]
  - Gallbladder disorder [Unknown]
  - Oedema [Not Recovered/Not Resolved]
